FAERS Safety Report 8738184 (Version 2)
Quarter: 2013Q4

REPORT INFORMATION
  Report Type: Spontaneous
  Country: US (occurrence: US)
  Receive Date: 20120823
  Receipt Date: 20131101
  Transmission Date: 20140711
  Serious: No
  Sender: FDA-Public Use
  Company Number: US-009507513-1204USA03604

PATIENT
  Age: 75 Year
  Sex: Female

DRUGS (1)
  1. AZASITE [Suspect]
     Dosage: 1-2 DF, QD
     Route: 047
     Dates: start: 20120419

REACTIONS (4)
  - Ocular rosacea [Unknown]
  - Wrong technique in drug usage process [Unknown]
  - Eye pain [Unknown]
  - Eye swelling [Unknown]
